FAERS Safety Report 4557725-7 (Version None)
Quarter: 2005Q1

REPORT INFORMATION
  Report Type: 
  Country: None (occurrence: None)
  Receive Date: 20050118
  Receipt Date: 20050105
  Transmission Date: 20050727
  Serious: Yes (Death)
  Sender: FDA-Public Use
  Company Number: 02100-JPN-05-0004

PATIENT
  Age: 75 Year
  Sex: Male

DRUGS (6)
  1. CILOSTAZOL [Suspect]
     Indication: LACUNAR INFARCTION
     Dosage: 200 MG ORAL
     Route: 048
     Dates: start: 20041210, end: 20041216
  2. METHYLPHENIDATE HCL [Concomitant]
  3. METOCLOPRAMIDE [Concomitant]
  4. FAMOTIDINE [Concomitant]
  5. CEFOZOPRAN HYDROCHLORIDE [Concomitant]
  6. PANIPENEM BETAMIPRON [Concomitant]

REACTIONS (9)
  - AORTIC ANEURYSM RUPTURE [None]
  - BLOOD PRESSURE IMMEASURABLE [None]
  - HAEMOGLOBIN DECREASED [None]
  - HEPATIC FUNCTION ABNORMAL [None]
  - HYPOVENTILATION [None]
  - LOSS OF CONSCIOUSNESS [None]
  - MALNUTRITION [None]
  - RED BLOOD CELL COUNT DECREASED [None]
  - WHITE BLOOD CELL COUNT ABNORMAL [None]
